FAERS Safety Report 5710627-2 (Version None)
Quarter: 2008Q2

REPORT INFORMATION
  Report Type: 
  Country: None (occurrence: None)
  Receive Date: 20080415
  Receipt Date: 20080404
  Transmission Date: 20081010
  Serious: Yes (Other)
  Sender: FDA-Public Use
  Company Number: 062-21880-08040296

PATIENT
  Age: 41 Year
  Sex: Male
  Weight: 68 kg

DRUGS (1)
  1. REVLIMID [Suspect]
     Indication: ROSAI-DORFMAN SYNDROME
     Dosage: 5 MG, FOR 21 DAYS, THEN BREAK OF 7 DAYS, ORAL
     Route: 048
     Dates: start: 20070701

REACTIONS (4)
  - CONDITION AGGRAVATED [None]
  - IGA NEPHROPATHY [None]
  - NO THERAPEUTIC RESPONSE [None]
  - PARAESTHESIA [None]
